FAERS Safety Report 9317122 (Version 2)
Quarter: 2013Q3

REPORT INFORMATION
  Report Type: Spontaneous
  Country: US (occurrence: None)
  Receive Date: 20130524
  Receipt Date: 20130725
  Transmission Date: 20140515
  Serious: Yes (Other)
  Sender: FDA-Public Use
  Company Number: JPI-P-031958

PATIENT
  Age: 62 Year
  Sex: Female
  Weight: 70.31 kg

DRUGS (4)
  1. XYREM [Suspect]
     Indication: FIBROMYALGIA
     Route: 048
     Dates: start: 200608
  2. ACETYLSALICYLIC ACID [Concomitant]
  3. ROSUVASTATIN CALCIUM [Concomitant]
  4. ALENDRONATE SODIUM [Concomitant]

REACTIONS (5)
  - Neuropathy peripheral [None]
  - Burning sensation [None]
  - Sjogren^s syndrome [None]
  - Anxiety [None]
  - Onychomycosis [None]
